FAERS Safety Report 21169924 (Version 2)
Quarter: 2022Q4

REPORT INFORMATION
  Report Type: Spontaneous
  Country: US (occurrence: US)
  Receive Date: 20220804
  Receipt Date: 20221117
  Transmission Date: 20230113
  Serious: Yes (Hospitalization)
  Sender: FDA-Public Use
  Company Number: US-CELGENE-USA-20210606546

PATIENT
  Age: 53 Year
  Sex: Male
  Weight: 46.08 kg

DRUGS (4)
  1. POMALYST [Suspect]
     Active Substance: POMALIDOMIDE
     Indication: Plasma cell myeloma
     Dosage: 4 MILLIGRAM
     Route: 048
     Dates: start: 201801
  2. POMALYST [Suspect]
     Active Substance: POMALIDOMIDE
     Dosage: 4 MILLIGRAM
     Route: 048
     Dates: start: 20210114
  3. POMALYST [Suspect]
     Active Substance: POMALIDOMIDE
     Dosage: FREQ: D1-21 Q28 DAYS
     Route: 048
     Dates: start: 20210210
  4. POMALYST [Suspect]
     Active Substance: POMALIDOMIDE
     Dosage: DAILY D1-21 DAYS, 7 DAYS OFF (28-DAY CYCLE)
     Route: 048
     Dates: start: 20220329

REACTIONS (3)
  - Urinary tract infection [Recovered/Resolved]
  - Somnolence [Recovering/Resolving]
  - Full blood count decreased [Recovered/Resolved]
